FAERS Safety Report 5636990-9 (Version None)
Quarter: 2008Q1

REPORT INFORMATION
  Report Type: 
  Country: None (occurrence: None)
  Receive Date: 20080225
  Receipt Date: 20070404
  Transmission Date: 20080703
  Serious: No
  Sender: FDA-Public Use
  Company Number: US-BRISTOL-MYERS SQUIBB COMPANY-13738505

PATIENT
  Sex: Female
  Weight: 73 kg

DRUGS (11)
  1. GLUCOPHAGE [Suspect]
     Indication: DIABETES MELLITUS
     Route: 048
  2. PLAVIX [Concomitant]
  3. BUSPAR [Concomitant]
  4. KENALOG [Concomitant]
  5. LIPITOR [Concomitant]
  6. NEURONTIN [Concomitant]
  7. TOPROL-XL [Concomitant]
  8. ACIPHEX [Concomitant]
  9. MAVIK [Concomitant]
  10. AMARYL [Concomitant]
  11. LASIX [Concomitant]

REACTIONS (3)
  - BLISTER [None]
  - BLOOD GLUCOSE INCREASED [None]
  - DIZZINESS [None]
